FAERS Safety Report 9858943 (Version 1)
Quarter: 2014Q1

REPORT INFORMATION
  Report Type: Spontaneous
  Country: US (occurrence: US)
  Receive Date: 20140131
  Receipt Date: 20140131
  Transmission Date: 20141002
  Serious: Yes (Death)
  Sender: FDA-Public Use
  Company Number: CHPA2014US001855

PATIENT
  Age: 45 Year
  Sex: Female

DRUGS (5)
  1. DIPHENHYDRAMINE [Suspect]
     Route: 065
  2. ACETAMINOPHEN (PARACETAMOL) [Suspect]
     Route: 065
  3. HEROIN [Suspect]
     Route: 065
  4. COCAINE [Suspect]
     Route: 065
  5. CITALOPRAM [Suspect]
     Route: 065

REACTIONS (1)
  - Intentional drug misuse [Fatal]
